FAERS Safety Report 7084515-6 (Version None)
Quarter: 2010Q4

REPORT INFORMATION
  Report Type: 
  Country: None (occurrence: None)
  Receive Date: 20101104
  Receipt Date: 20101102
  Transmission Date: 20110411
  Serious: Yes (Other)
  Sender: FDA-Public Use
  Company Number: BE-PFIZER INC-2010139246

PATIENT
  Sex: Male

DRUGS (1)
  1. ESTRACYT [Suspect]
     Dosage: UNK
     Route: 048
     Dates: end: 20101001

REACTIONS (1)
  - JAUNDICE [None]
